FAERS Safety Report 7935469-9 (Version None)
Quarter: 2011Q4

REPORT INFORMATION
  Report Type: 
  Country: None (occurrence: None)
  Receive Date: 20111123
  Receipt Date: 20111115
  Transmission Date: 20120403
  Serious: Yes (Hospitalization)
  Sender: FDA-Public Use
  Company Number: US-US-EMD SERONO, INC.-7097234

PATIENT
  Sex: Female

DRUGS (2)
  1. REBIF [Suspect]
     Indication: MULTIPLE SCLEROSIS
     Dates: start: 20111001
  2. MULTIPLE MEDICATIONS (UNSPECIFIED) [Concomitant]

REACTIONS (2)
  - FALL [None]
  - ORTHOSTATIC HYPOTENSION [None]
